FAERS Safety Report 8446232 (Version 3)
Quarter: 2013Q4

REPORT INFORMATION
  Report Type: Spontaneous
  Country: JP (occurrence: JP)
  Receive Date: 20120307
  Receipt Date: 20131029
  Transmission Date: 20140711
  Serious: Yes (Other)
  Sender: FDA-Public Use
  Company Number: PHHY2012JP016833

PATIENT
  Sex: Female

DRUGS (3)
  1. GLIVEC [Suspect]
     Indication: GASTROINTESTINAL STROMAL TUMOUR
     Dosage: UNK UKN, UNK
     Route: 048
  2. GLIVEC [Suspect]
     Dosage: 100 MG, DAILY
     Route: 048
  3. GLIVEC [Suspect]
     Dosage: 300 MG, DAILY
     Route: 048

REACTIONS (4)
  - Pulmonary alveolar haemorrhage [Unknown]
  - Pulmonary haemosiderosis [Unknown]
  - Interstitial lung disease [Recovering/Resolving]
  - Cardiac failure [Unknown]
